FAERS Safety Report 8481739-8 (Version None)
Quarter: 2012Q3

REPORT INFORMATION
  Report Type: 
  Country: None (occurrence: None)
  Receive Date: 20120702
  Receipt Date: 20120621
  Transmission Date: 20120928
  Serious: No
  Sender: FDA-Public Use
  Company Number: JP-ASTRAZENECA-2012SE36655

PATIENT
  Sex: Male

DRUGS (2)
  1. NESINA [Concomitant]
  2. SEROQUEL [Suspect]
     Route: 048
     Dates: start: 20120524

REACTIONS (1)
  - MALAISE [None]
